FAERS Safety Report 25256361 (Version 2)
Quarter: 2025Q2

REPORT INFORMATION
  Report Type: Spontaneous
  Country: US (occurrence: US)
  Receive Date: 20250430
  Receipt Date: 20250627
  Transmission Date: 20250717
  Serious: No
  Sender: INSUD PHARMA
  Company Number: US-INSUD PHARMA-2504US03037

PATIENT

DRUGS (2)
  1. ENILLORING [Suspect]
     Active Substance: ETHINYL ESTRADIOL\ETONOGESTREL
     Indication: Menstrual cycle management
     Route: 067
     Dates: start: 20250416, end: 20250416
  2. ENILLORING [Suspect]
     Active Substance: ETHINYL ESTRADIOL\ETONOGESTREL
     Route: 067

REACTIONS (5)
  - Vulvovaginal pain [Unknown]
  - Vulvovaginal discomfort [Unknown]
  - Product with quality issue administered [Unknown]
  - Device physical property issue [Unknown]
  - Product use in unapproved indication [Unknown]

NARRATIVE: CASE EVENT DATE: 20250416
